FAERS Safety Report 7305786-4 (Version None)
Quarter: 2011Q1

REPORT INFORMATION
  Report Type: 
  Country: None (occurrence: None)
  Receive Date: 20110222
  Receipt Date: 20110214
  Transmission Date: 20110831
  Serious: Yes (Hospitalization)
  Sender: FDA-Public Use
  Company Number: B0701053A

PATIENT
  Age: 58 Year
  Sex: Female

DRUGS (2)
  1. AVANDAMET [Suspect]
     Route: 048
     Dates: start: 20040101, end: 20080401
  2. AVANDIA [Suspect]
     Dosage: 2MG PER DAY
     Route: 048
     Dates: start: 20020101, end: 20040101

REACTIONS (1)
  - CEREBROVASCULAR ACCIDENT [None]
